FAERS Safety Report 6489733-3 (Version None)
Quarter: 2009Q4

REPORT INFORMATION
  Report Type: 
  Country: None (occurrence: None)
  Receive Date: 20091210
  Receipt Date: 20091204
  Transmission Date: 20100525
  Serious: Yes (Hospitalization)
  Sender: FDA-Public Use
  Company Number: FR-BRISTOL-MYERS SQUIBB COMPANY-14883987

PATIENT
  Age: 50 Year
  Sex: Female

DRUGS (5)
  1. ABILIFY [Suspect]
     Route: 048
     Dates: end: 20091007
  2. DEPAKOTE [Suspect]
     Route: 048
     Dates: end: 20091007
  3. SOLIAN [Concomitant]
     Route: 048
  4. NOCTRAN [Concomitant]
     Route: 048
  5. TERCIAN [Concomitant]
     Route: 048

REACTIONS (4)
  - DIABETIC KETOACIDOSIS [None]
  - HYPERTRIGLYCERIDAEMIA [None]
  - PANCREATITIS [None]
  - RENAL FAILURE ACUTE [None]
